FAERS Safety Report 4860733-X (Version None)
Quarter: 2005Q4

REPORT INFORMATION
  Report Type: 
  Country: None (occurrence: None)
  Receive Date: 20051216
  Receipt Date: 20051216
  Transmission Date: 20060501
  Serious: Yes (Death, Hospitalization)
  Sender: FDA-Public Use
  Company Number: None

PATIENT
  Sex: Male
  Weight: 112.9 kg

DRUGS (7)
  1. ZOLADEX [Suspect]
     Indication: PROSTATE CANCER
     Dosage: SEE IMAGE
     Route: 058
     Dates: start: 20050525, end: 20051109
  2. ZOLADEX [Suspect]
     Indication: PROSTATE CANCER
     Dosage: SEE IMAGE
     Route: 058
     Dates: start: 20051109
  3. CASODEX [Suspect]
     Dosage: SEE IMAGE
     Route: 048
     Dates: start: 20050525, end: 20051203
  4. CASODEX [Suspect]
     Dosage: SEE IMAGE
     Route: 048
     Dates: start: 20051109
  5. MITOXANTRONE [Suspect]
     Dosage: SEE IMAGE
     Dates: start: 20051109
  6. PREDNISONE [Suspect]
     Dosage: SEE IMAGE
     Dates: start: 20051109
  7. HORMONAL THERAPY [Suspect]
     Dosage: SEE IMAGE
     Dates: start: 20051109

REACTIONS (1)
  - PARATHYROIDECTOMY [None]
